FAERS Safety Report 4504024-5 (Version None)
Quarter: 2004Q4

REPORT INFORMATION
  Report Type: 
  Country: None (occurrence: None)
  Receive Date: 20041115
  Receipt Date: 20041101
  Transmission Date: 20050328
  Serious: Yes (Other)
  Sender: FDA-Public Use
  Company Number: 2004085221

PATIENT
  Sex: Female

DRUGS (1)
  1. VISINE TEARS (GLYCERIN, HYDROXYPROPYLMETHYLCELLULOSE, POLYETHYLENE GLY [Suspect]
     Indication: DRY EYE
     Dosage: ONE DROP BID IN ONE

REACTIONS (1)
  - CATARACT OPERATION [None]
